FAERS Safety Report 5277463-5 (Version None)
Quarter: 2007Q1

REPORT INFORMATION
  Report Type: 
  Country: None (occurrence: None)
  Receive Date: 20070327
  Receipt Date: 20070315
  Transmission Date: 20070707
  Serious: Yes (Hospitalization)
  Sender: FDA-Public Use
  Company Number: FR-GILEAD-2006-0010839

PATIENT
  Sex: Male
  Weight: 87 kg

DRUGS (8)
  1. TRUVADA [Suspect]
     Route: 048
     Dates: start: 20060215, end: 20061012
  2. DARUNAVIR [Suspect]
     Route: 048
     Dates: start: 20060215
  3. SURGAM [Suspect]
     Dates: start: 20060515, end: 20061010
  4. NORVIR [Concomitant]
     Route: 048
  5. KALETRA [Concomitant]
  6. FUZEON [Concomitant]
     Route: 058
     Dates: start: 20060201
  7. DIANTALVIC [Concomitant]
  8. BEFIZAL [Concomitant]

REACTIONS (3)
  - ARTHRALGIA [None]
  - RENAL FAILURE ACUTE [None]
  - TUBULOINTERSTITIAL NEPHRITIS [None]
